FAERS Safety Report 6022978-5 (Version None)
Quarter: 2008Q4

REPORT INFORMATION
  Report Type: 
  Country: None (occurrence: None)
  Receive Date: 20081230
  Receipt Date: 20081223
  Transmission Date: 20090506
  Serious: Yes (Death)
  Sender: FDA-Public Use
  Company Number: US-ASTRAZENECA-2008UW28437

PATIENT
  Sex: Male

DRUGS (2)
  1. SEROQUEL [Suspect]
     Indication: BIPOLAR DISORDER
     Route: 048
     Dates: start: 20061121, end: 20070601
  2. RISPERDAL [Concomitant]
     Dosage: 0.25MG - 1MG
     Dates: start: 20060929

REACTIONS (2)
  - DEATH [None]
  - DIABETES MELLITUS [None]
